FAERS Safety Report 23986240 (Version 1)
Quarter: 2024Q2

REPORT INFORMATION
  Report Type: Spontaneous
  Country: US (occurrence: None)
  Receive Date: 20240617
  Receipt Date: 20240617
  Transmission Date: 20240716
  Serious: Yes (Other)
  Sender: FDA-Public Use
  Company Number: None

PATIENT
  Age: 61 Year
  Sex: Female
  Weight: 68.85 kg

DRUGS (1)
  1. AMBRISENTAN [Suspect]
     Active Substance: AMBRISENTAN
     Indication: Pulmonary arterial hypertension
     Dosage: FREQUENCY : DAILY;?
     Route: 048
     Dates: start: 20240613, end: 20240614

REACTIONS (5)
  - Chest pain [None]
  - Dyspnoea [None]
  - Headache [None]
  - Oxygen saturation decreased [None]
  - Therapy cessation [None]

NARRATIVE: CASE EVENT DATE: 20240617
